FAERS Safety Report 4335451-7 (Version None)
Quarter: 2004Q2

REPORT INFORMATION
  Report Type: 
  Country: None (occurrence: None)
  Receive Date: 20040409
  Receipt Date: 20040331
  Transmission Date: 20050107
  Serious: Yes (Hospitalization)
  Sender: FDA-Public Use
  Company Number: FR-BRISTOL-MYERS SQUIBB COMPANY-12547071

PATIENT
  Age: 47 Year
  Sex: Male

DRUGS (2)
  1. AMIKLIN [Suspect]
     Route: 042
     Dates: start: 20040109, end: 20040114
  2. TAZOCILLINE [Suspect]
     Route: 042
     Dates: start: 20040108, end: 20040114

REACTIONS (2)
  - RASH PUSTULAR [None]
  - TOXIC SKIN ERUPTION [None]
